FAERS Safety Report 16010758 (Version 2)
Quarter: 2019Q1

REPORT INFORMATION
  Report Type: Spontaneous
  Country: JP (occurrence: JP)
  Receive Date: 20190227
  Receipt Date: 20190307
  Transmission Date: 20190418
  Serious: Yes (Hospitalization)
  Sender: FDA-Public Use
  Company Number: JP-GLAXOSMITHKLINE-JP2019JPN021012

PATIENT
  Age: 44 Year
  Sex: Male

DRUGS (5)
  1. SOLU-MEDROL [Concomitant]
     Active Substance: METHYLPREDNISOLONE SODIUM SUCCINATE
     Indication: ASTHMA
     Dosage: UNK
     Dates: start: 201811
  2. FENTANYL CITRATE INJECTION [Concomitant]
     Active Substance: FENTANYL CITRATE
     Indication: ASTHMA
     Dosage: UNK
     Dates: start: 201811
  3. VENTOLINE [Suspect]
     Active Substance: ALBUTEROL
     Indication: ASTHMA
     Dosage: 2.5 ML, EVERY 2 HOURS, 4 TIMES IN TOTAL
     Route: 055
     Dates: start: 201811, end: 201811
  4. ADRENALINE [Concomitant]
     Active Substance: EPINEPHRINE
     Indication: ASTHMA
     Dosage: UNK
     Dates: start: 201811
  5. PROPOFOL. [Concomitant]
     Active Substance: PROPOFOL
     Indication: ASTHMA
     Dosage: UNK
     Dates: start: 201811

REACTIONS (2)
  - Bronchospasm [Recovered/Resolved]
  - Asthma [Recovered/Resolved]

NARRATIVE: CASE EVENT DATE: 201811
